FAERS Safety Report 14609773 (Version 9)
Quarter: 2019Q1

REPORT INFORMATION
  Report Type: Report from Study
  Country: ES (occurrence: ES)
  Receive Date: 20180307
  Receipt Date: 20190226
  Transmission Date: 20190417
  Serious: Yes (Hospitalization, Other)
  Sender: FDA-Public Use
  Company Number: ES-PFIZER INC-2018092401

PATIENT
  Age: 55 Year
  Sex: Female

DRUGS (8)
  1. AVASTIN [Suspect]
     Active Substance: BEVACIZUMAB
     Indication: BREAST CANCER
     Dosage: 10 MG/KG, CYCLIC  (EVERY 2 WEEKS)/ MOST RECENT DOSE: 23MAY2018
     Route: 042
     Dates: start: 20170202
  2. PREGABALIN. [Concomitant]
     Active Substance: PREGABALIN
     Dosage: 75 MG, UNK
     Route: 048
     Dates: start: 20170510
  3. ENANTYUM [Concomitant]
     Active Substance: DEXKETOPROFEN TROMETAMOL
     Indication: TOOTHACHE
     Dosage: 25 MG, UNK
     Route: 048
     Dates: start: 20170508, end: 20170518
  4. ZOMETA [Concomitant]
     Active Substance: ZOLEDRONIC ACID
     Dosage: 4 MG, UNK
     Route: 048
     Dates: start: 20170202
  5. PARACETAMOL [Concomitant]
     Active Substance: ACETAMINOPHEN
     Indication: PYREXIA
     Dosage: 1 G, 1X/DAY (EVERY 24 HOUR)
     Route: 048
     Dates: start: 20170203, end: 20170203
  6. AMOXICILLIN. [Concomitant]
     Active Substance: AMOXICILLIN
     Indication: TOOTHACHE
     Dosage: 750 MG, UNK
     Route: 048
     Dates: start: 20170508, end: 20170518
  7. PACLITAXEL. [Suspect]
     Active Substance: PACLITAXEL
     Indication: BREAST CANCER
     Dosage: 80 MG/M2, WEEKLY, MOST RECENT DOSE: 12/JUL/2017
     Route: 042
     Dates: start: 20170202
  8. VASELINE PURE [Concomitant]
     Active Substance: PETROLATUM
     Dosage: UNK
     Route: 061
     Dates: start: 20170403, end: 20170410

REACTIONS (31)
  - Skin hyperpigmentation [Recovered/Resolved]
  - Nail disorder [Recovered/Resolved]
  - Dysphonia [Recovered/Resolved]
  - Scab [Recovered/Resolved]
  - Nasopharyngitis [Recovered/Resolved]
  - Ligament rupture [Recovered/Resolved with Sequelae]
  - Nail pigmentation [Recovered/Resolved]
  - Pyrexia [Recovered/Resolved]
  - Pyrexia [Recovered/Resolved]
  - Ascites [Recovered/Resolved]
  - Pain in extremity [Recovered/Resolved]
  - Abdominal pain upper [Recovered/Resolved with Sequelae]
  - Gingival bleeding [Recovered/Resolved]
  - Erythema [Recovered/Resolved]
  - Diarrhoea [Recovered/Resolved]
  - Neuropathy peripheral [Recovering/Resolving]
  - Musculoskeletal pain [Recovered/Resolved]
  - Mouth ulceration [Recovered/Resolved]
  - Hypertension [Recovered/Resolved]
  - Skin hyperpigmentation [Recovered/Resolved]
  - Laryngitis [Recovered/Resolved]
  - Epistaxis [Recovered/Resolved]
  - Asthenia [Recovered/Resolved]
  - Helicobacter infection [Recovered/Resolved]
  - Epistaxis [Recovered/Resolved]
  - Hypertension [Recovered/Resolved]
  - Skin hyperpigmentation [Recovered/Resolved]
  - Rash [Recovered/Resolved]
  - Pseudomonas infection [Recovered/Resolved]
  - Diarrhoea [Recovered/Resolved]
  - Tooth infection [Recovered/Resolved]

NARRATIVE: CASE EVENT DATE: 20170202
